FAERS Safety Report 19540423 (Version 2)
Quarter: 2021Q3

REPORT INFORMATION
  Report Type: Spontaneous
  Country: JP (occurrence: JP)
  Receive Date: 20210714
  Receipt Date: 20210731
  Transmission Date: 20211014
  Serious: Yes (Hospitalization)
  Sender: FDA-Public Use
  Company Number: JP-JNJFOC-20210727649

PATIENT
  Sex: Male

DRUGS (1)
  1. ZYTIGA [Suspect]
     Active Substance: ABIRATERONE ACETATE
     Indication: PRODUCT USED FOR UNKNOWN INDICATION
     Dosage: DOSE UNKNOWN,AFTER MEALS
     Route: 048

REACTIONS (3)
  - Hospitalisation [Unknown]
  - Off label use [Unknown]
  - Inappropriate schedule of product administration [Unknown]
